FAERS Safety Report 9337893 (Version 6)
Quarter: 2013Q4

REPORT INFORMATION
  Report Type: Report from Study
  Country: CA (occurrence: CA)
  Receive Date: 20130608
  Receipt Date: 20131227
  Transmission Date: 20140711
  Serious: Yes (Hospitalization, Other)
  Sender: FDA-Public Use
  Company Number: CA-ROCHE-1218189

PATIENT
  Age: 61 Year
  Sex: Male
  Weight: 87 kg

DRUGS (10)
  1. AVASTIN [Suspect]
     Indication: GLIOBLASTOMA
     Route: 042
     Dates: start: 20130114, end: 20131107
  2. AVASTIN [Suspect]
     Route: 042
     Dates: start: 20130328
  3. AVASTIN [Suspect]
     Route: 042
     Dates: start: 20130411
  4. DECADRON [Suspect]
     Indication: PRODUCT USED FOR UNKNOWN INDICATION
     Route: 048
  5. FOSINOPRIL [Concomitant]
  6. NORVASC [Concomitant]
  7. METFORMIN [Concomitant]
     Route: 065
  8. DILANTIN [Concomitant]
  9. ACETAMINOPHEN [Concomitant]
     Indication: PREMEDICATION
     Route: 048
     Dates: start: 20130328, end: 20131107
  10. DIPHENHYDRAMINE HCL [Concomitant]
     Indication: PREMEDICATION
     Route: 048
     Dates: start: 20130328, end: 20131107

REACTIONS (4)
  - General physical health deterioration [Unknown]
  - Drug withdrawal syndrome [Unknown]
  - General physical health deterioration [Unknown]
  - Disease progression [Not Recovered/Not Resolved]
